FAERS Safety Report 8354216 (Version 4)
Quarter: 2012Q4

REPORT INFORMATION
  Report Type: 
  Country: CA (occurrence: CA)
  Receive Date: 20120125
  Receipt Date: 20121003
  Transmission Date: 20130627
  Serious: Yes (Hospitalization)
  Sender: FDA-Public Use
  Company Number: PHHY2011CA95178

PATIENT
  Age: 73 None
  Sex: Female

DRUGS (4)
  1. EXJADE [Suspect]
     Indication: MYELODYSPLASTIC SYNDROME
     Dosage: 1000 mg
     Route: 048
  2. EXJADE [Suspect]
     Dosage: UNK
  3. MULTIVITAMINS [Concomitant]
  4. FOSAVANCE [Concomitant]

REACTIONS (6)
  - Malaise [Unknown]
  - Pulmonary oedema [Unknown]
  - Dyspnoea [Recovered/Resolved]
  - Pericarditis [Unknown]
  - Influenza [Unknown]
  - Urine abnormality [Unknown]
